FAERS Safety Report 15811563 (Version 1)
Quarter: 2019Q1

REPORT INFORMATION
  Report Type: Spontaneous
  Country: US (occurrence: US)
  Receive Date: 20190111
  Receipt Date: 20190111
  Transmission Date: 20190417
  Serious: No
  Sender: FDA-Public Use
  Company Number: US-PFIZER INC-2019014342

PATIENT
  Age: 70 Year
  Sex: Male

DRUGS (1)
  1. GENOTROPIN MQ [Suspect]
     Active Substance: SOMATROPIN
     Indication: CRANIOPHARYNGIOMA
     Dosage: 0.4 MG, DAILY
     Dates: end: 201707

REACTIONS (3)
  - Mood altered [Unknown]
  - Disturbance in social behaviour [Unknown]
  - Product use in unapproved indication [Unknown]
